FAERS Safety Report 14406396 (Version 1)
Quarter: 2018Q1

REPORT INFORMATION
  Report Type: Spontaneous
  Country: US (occurrence: US)
  Receive Date: 20180118
  Receipt Date: 20180118
  Transmission Date: 20180509
  Serious: Yes (Hospitalization, Other)
  Sender: FDA-Public Use
  Company Number: US-GLAXOSMITHKLINE-US2018007789

PATIENT
  Age: 56 Year
  Sex: Female

DRUGS (12)
  1. NUCALA [Suspect]
     Active Substance: MEPOLIZUMAB
     Indication: ASTHMA
     Dosage: 100 MG, CYC
     Route: 058
  2. DUONEB [Concomitant]
     Active Substance: ALBUTEROL SULFATE\IPRATROPIUM BROMIDE
  3. SYNTHROID [Concomitant]
     Active Substance: LEVOTHYROXINE SODIUM
  4. NASONEX [Concomitant]
     Active Substance: MOMETASONE FUROATE
  5. SYMBICORT [Concomitant]
     Active Substance: BUDESONIDE\FORMOTEROL FUMARATE DIHYDRATE
  6. ZYFLO [Concomitant]
     Active Substance: ZILEUTON
  7. CARDIZEM [Concomitant]
     Active Substance: DILTIAZEM HYDROCHLORIDE
  8. METHYLPREDNISOLONE. [Concomitant]
     Active Substance: METHYLPREDNISOLONE
  9. PROAIR HFA [Concomitant]
     Active Substance: ALBUTEROL SULFATE
  10. FLORASTOR [Concomitant]
     Active Substance: SACCHAROMYCES CEREVISIAE
  11. ZOCOR [Concomitant]
     Active Substance: SIMVASTATIN
  12. CALCIUM [Concomitant]
     Active Substance: CALCIUM

REACTIONS (6)
  - Sepsis [Unknown]
  - Herpes zoster [Unknown]
  - Asthma [Unknown]
  - Diverticulitis [Unknown]
  - Dehydration [Unknown]
  - Clostridium difficile infection [Unknown]

NARRATIVE: CASE EVENT DATE: 20161110
